FAERS Safety Report 6407753-1 (Version None)
Quarter: 2009Q4

REPORT INFORMATION
  Report Type: 
  Country: None (occurrence: None)
  Receive Date: 20091020
  Receipt Date: 20091006
  Transmission Date: 20100525
  Serious: Yes (Other)
  Sender: FDA-Public Use
  Company Number: GB-MYLANLABS-2009S1017555

PATIENT
  Age: 31 Year
  Sex: Female

DRUGS (6)
  1. METOCLOPRAMIDE [Suspect]
     Indication: VOMITING
  2. ONDANSETRON [Suspect]
     Indication: VOMITING
  3. RANITIDINE [Suspect]
     Indication: VOMITING
     Route: 042
  4. CYCLIZINE [Suspect]
     Indication: VOMITING
     Route: 042
  5. PREDNISOLONE [Suspect]
     Indication: VOMITING
  6. THIAMINE HCL [Suspect]
     Indication: VOMITING
     Route: 048

REACTIONS (3)
  - DRUG EXPOSURE DURING PREGNANCY [None]
  - DRUG INEFFECTIVE [None]
  - VOMITING [None]
